FAERS Safety Report 5905116-6 (Version None)
Quarter: 2008Q4

REPORT INFORMATION
  Report Type: 
  Country: None (occurrence: None)
  Receive Date: 20081001
  Receipt Date: 20080922
  Transmission Date: 20090506
  Serious: Yes (Death)
  Sender: FDA-Public Use
  Company Number: DK-ASTRAZENECA-2008SE03645

PATIENT
  Age: 1003 Month
  Sex: Male

DRUGS (7)
  1. ESOPRAL [Suspect]
     Indication: DYSPEPSIA
     Route: 048
     Dates: start: 20070911
  2. ESOPRAL [Suspect]
     Indication: HIATUS HERNIA
     Route: 048
     Dates: start: 20070911
  3. ESOPRAL [Suspect]
     Indication: GASTRITIS
     Route: 048
     Dates: start: 20070911
  4. PRAVASTATIN [Suspect]
     Indication: HYPERCHOLESTEROLAEMIA
     Dates: start: 20070503, end: 20070803
  5. CENTYL MED KALIUMKLORID [Concomitant]
     Route: 048
  6. SOTALOL [Concomitant]
     Indication: HYPERTENSION
  7. MAGNYL ^DAK^ [Concomitant]
     Indication: THROMBOSIS PROPHYLAXIS
     Dosage: 100 MILLIGRAM(S)
     Route: 048

REACTIONS (2)
  - MUSCULAR WEAKNESS [None]
  - RHABDOMYOLYSIS [None]
